FAERS Safety Report 4373134-8 (Version None)
Quarter: 2004Q2

REPORT INFORMATION
  Report Type: 
  Country: None (occurrence: None)
  Receive Date: 20040603
  Receipt Date: 20040519
  Transmission Date: 20050107
  Serious: Yes (Hospitalization, Disabling)
  Sender: FDA-Public Use
  Company Number: USA040567932

PATIENT
  Age: 61 Year
  Sex: Female

DRUGS (1)
  1. HUMULIN 70/30 [Suspect]
     Dates: start: 19980101

REACTIONS (8)
  - BALANCE DISORDER [None]
  - CATARACT [None]
  - DIARRHOEA [None]
  - DIZZINESS [None]
  - IMPAIRED DRIVING ABILITY [None]
  - VISUAL ACUITY REDUCED [None]
  - VOMITING [None]
  - WEIGHT LOSS DIET [None]
